FAERS Safety Report 9750618 (Version 1)
Quarter: 2013Q4

REPORT INFORMATION
  Report Type: Spontaneous
  Country: US (occurrence: US)
  Receive Date: 20131212
  Receipt Date: 20131212
  Transmission Date: 20140711
  Serious: No
  Sender: FDA-Public Use
  Company Number: US-BIOGENIDEC-2013BI099777

PATIENT
  Sex: Female

DRUGS (7)
  1. TECFIDERA [Suspect]
     Indication: MULTIPLE SCLEROSIS
     Route: 048
     Dates: start: 20130925
  2. ATORVASTATIN [Concomitant]
  3. CUMBALTA (NOS) [Concomitant]
  4. KLONOPIN [Concomitant]
  5. METHIMAZOLE [Concomitant]
  6. POTASSIUM CHLORIDE [Concomitant]
  7. VITAMIN D [Concomitant]

REACTIONS (1)
  - Rash [Recovered/Resolved]
